FAERS Safety Report 9206474 (Version 2)
Quarter: 2013Q2

REPORT INFORMATION
  Report Type: Spontaneous
  Country: US (occurrence: None)
  Receive Date: 20120731
  Receipt Date: 20121130
  Transmission Date: 20140414
  Serious: Yes (Other)
  Sender: FDA-Public Use
  Company Number: US201204007186

PATIENT
  Age: 47 Year
  Sex: Female

DRUGS (3)
  1. BYDUREON [Suspect]
     Route: 058
     Dates: end: 20120406
  2. METFORMIN (METFORMIN) [Concomitant]
  3. GLYBURIDE (GLIBENCLAMIDE) [Concomitant]

REACTIONS (1)
  - Angioedema [None]
